FAERS Safety Report 7493869-8 (Version None)
Quarter: 2011Q2

REPORT INFORMATION
  Report Type: 
  Country: None (occurrence: None)
  Receive Date: 20110519
  Receipt Date: 20110519
  Transmission Date: 20111010
  Serious: Yes (Life-Threatening, Other)
  Sender: FDA-Public Use
  Company Number: None

PATIENT
  Age: 69 Year
  Sex: Male
  Weight: 97.0698 kg

DRUGS (1)
  1. PANTOPRAZOLE [Suspect]
     Indication: BARRETT'S OESOPHAGUS
     Dosage: 40MG 2 TIME DAY ORAL
     Route: 048
     Dates: start: 20110308

REACTIONS (6)
  - THROAT IRRITATION [None]
  - CONDITION AGGRAVATED [None]
  - BARRETT'S OESOPHAGUS [None]
  - PAIN [None]
  - PRODUCT SUBSTITUTION ISSUE [None]
  - ABDOMINAL DISCOMFORT [None]
